FAERS Safety Report 9836308 (Version 1)
Quarter: 2014Q1

REPORT INFORMATION
  Report Type: Spontaneous
  Country: US (occurrence: US)
  Receive Date: 20140123
  Receipt Date: 20140123
  Transmission Date: 20141002
  Serious: Yes (Hospitalization)
  Sender: FDA-Public Use
  Company Number: US-BIOGENIDEC-2014BI006420

PATIENT
  Age: 63 Year
  Sex: Female

DRUGS (1)
  1. AVONEX [Suspect]
     Indication: MULTIPLE SCLEROSIS
     Route: 030
     Dates: start: 19990519

REACTIONS (9)
  - Coma [Recovered/Resolved]
  - Angioedema [Recovered/Resolved]
  - Chronic sinusitis [Not Recovered/Not Resolved]
  - Memory impairment [Not Recovered/Not Resolved]
  - Adverse drug reaction [Recovered/Resolved]
  - Dysphonia [Not Recovered/Not Resolved]
  - Swollen tongue [Recovered/Resolved]
  - Hypertension [Unknown]
  - Depression [Not Recovered/Not Resolved]
